FAERS Safety Report 13887280 (Version 1)
Quarter: 2017Q3

REPORT INFORMATION
  Report Type: Spontaneous
  Country: US (occurrence: US)
  Receive Date: 20170821
  Receipt Date: 20170821
  Transmission Date: 20171127
  Serious: No
  Sender: FDA-Public Use
  Company Number: US-ROCHE-1007569

PATIENT
  Sex: Female
  Weight: 67.65 kg

DRUGS (1)
  1. ACTEMRA [Suspect]
     Active Substance: TOCILIZUMAB
     Indication: RHEUMATOID ARTHRITIS
     Dosage: RECENT INFUSIONS ON 18/OCT/2011
     Route: 042
     Dates: start: 20110918

REACTIONS (5)
  - Blood pressure increased [Unknown]
  - Flushing [Unknown]
  - Erythema [Unknown]
  - Hyperhidrosis [Unknown]
  - Burning sensation [Unknown]
